FAERS Safety Report 8974098 (Version 1)
Quarter: 2012Q4

REPORT INFORMATION
  Report Type: Spontaneous
  Country: US (occurrence: None)
  Receive Date: 20121217
  Receipt Date: 20121217
  Transmission Date: 20130627
  Serious: Yes (Other)
  Sender: FDA-Public Use
  Company Number: None

PATIENT
  Age: 63 Year
  Sex: Male
  Weight: 70.9 kg

DRUGS (12)
  1. CETUXIMAB [Suspect]
     Indication: HEAD AND NECK CANCER METASTATIC
     Dosage: 730MG -400MG/M2 LOADING DOSE ONCE IV DRIP
     Route: 041
     Dates: start: 20121024, end: 20121024
  2. ONDANSETRON [Concomitant]
  3. DEXAMETHASONE [Concomitant]
  4. DOCETAXEL [Concomitant]
  5. CARBOPLATIN [Concomitant]
  6. ACETAMINOPHEN [Concomitant]
  7. DIHPENHYDRAMINE [Concomitant]
  8. FLEXERIL [Concomitant]
  9. PROMETHAZINE [Concomitant]
  10. DILAUDID [Concomitant]
  11. LISINOPRIL [Concomitant]
  12. ZOFRAN [Concomitant]

REACTIONS (7)
  - Feeling hot [None]
  - Dizziness [None]
  - Pruritus [None]
  - Palmar erythema [None]
  - Flushing [None]
  - Rash macular [None]
  - Infusion related reaction [None]
